FAERS Safety Report 25412951 (Version 1)
Quarter: 2025Q2

REPORT INFORMATION
  Report Type: Spontaneous
  Country: US (occurrence: US)
  Receive Date: 20250609
  Receipt Date: 20250609
  Transmission Date: 20250716
  Serious: No
  Sender: BAYER HEALTHCARE PHARMACEUTICALS INC.
  Company Number: US-BAYER-2025A073992

PATIENT
  Age: 77 Year
  Sex: Female

DRUGS (1)
  1. CLIMARA [Suspect]
     Active Substance: ESTRADIOL
     Indication: Post procedural complication
     Route: 062
     Dates: start: 1998

REACTIONS (2)
  - Device use issue [None]
  - Device adhesion issue [None]
